FAERS Safety Report 18382865 (Version 1)
Quarter: 2020Q4

REPORT INFORMATION
  Report Type: Other
  Country: US (occurrence: US)
  Receive Date: 20201014
  Receipt Date: 20201014
  Transmission Date: 20210114
  Serious: Yes (Other)
  Sender: FDA-Public Use
  Company Number: US-ROCHE-2694810

PATIENT
  Sex: Male

DRUGS (1)
  1. VALCYTE [Suspect]
     Active Substance: VALGANCICLOVIR HYDROCHLORIDE
     Indication: RENAL TRANSPLANT
     Route: 065

REACTIONS (1)
  - Viral infection [Unknown]
